FAERS Safety Report 4481619-9 (Version None)
Quarter: 2004Q4

REPORT INFORMATION
  Report Type: 
  Country: None (occurrence: None)
  Receive Date: 20041021
  Receipt Date: 20041007
  Transmission Date: 20050328
  Serious: Yes (Hospitalization)
  Sender: FDA-Public Use
  Company Number: JP-MERCK-0410USA01556

PATIENT
  Age: 72 Year
  Sex: Female

DRUGS (5)
  1. PEPCID [Suspect]
     Route: 042
     Dates: start: 20040928, end: 20040928
  2. SULPERAZONE [Suspect]
     Route: 065
     Dates: start: 20040928, end: 20040930
  3. PALUX [Suspect]
     Route: 065
     Dates: start: 20040928, end: 20040930
  4. [THERAPY UNSPECIFIED] [Concomitant]
     Route: 048
     Dates: end: 20040930
  5. VITAMINS (UNSPECIFIED) [Concomitant]
     Route: 048
     Dates: end: 20040930

REACTIONS (5)
  - DIALYSIS [None]
  - EATING DISORDER [None]
  - EOSINOPHIL PERCENTAGE INCREASED [None]
  - HEPATITIS [None]
  - WHITE BLOOD CELL COUNT INCREASED [None]
